FAERS Safety Report 11137893 (Version 1)
Quarter: 2015Q2

REPORT INFORMATION
  Report Type: Spontaneous
  Country: US (occurrence: US)
  Receive Date: 20150526
  Receipt Date: 20150526
  Transmission Date: 20150821
  Serious: No
  Sender: FDA-Public Use
  Company Number: US-MALLINCKRODT-T201404642

PATIENT
  Sex: Female

DRUGS (20)
  1. COREG [Concomitant]
     Active Substance: CARVEDILOL
     Dosage: UNK
  2. ERGOCALCIFEROL. [Concomitant]
     Active Substance: ERGOCALCIFEROL
  3. CLARITIN [Concomitant]
     Active Substance: LORATADINE
     Dosage: UNK
     Route: 048
  4. LISINOPRIL. [Concomitant]
     Active Substance: LISINOPRIL
  5. PROPRANOLOL [Concomitant]
     Active Substance: PROPRANOLOL\PROPRANOLOL HYDROCHLORIDE
  6. VITAMIN B COMPLEX [Concomitant]
     Active Substance: CYANOCOBALAMIN\DEXPANTHENOL\NIACINAMIDE\PYRIDOXINE HYDROCHLORIDE\RIBOFLAVIN 5^-PHOSPHATE SODIUM\THIAMINE HYDROCHLORIDE\VITAMIN B COMPLEX
  7. STOOL SOFTENER [Concomitant]
     Active Substance: DOCUSATE CALCIUM
  8. TRAZODONE [Concomitant]
     Active Substance: TRAZODONE HYDROCHLORIDE
  9. TYLENOL EXTRA STRENGTH [Concomitant]
     Active Substance: ACETAMINOPHEN
  10. H.P. ACTHAR [Suspect]
     Active Substance: CORTICOTROPIN
     Indication: PROTEINURIA
     Dosage: 80 U, BIWEEKLY
     Route: 058
     Dates: start: 20140917
  11. PREDNISONE. [Concomitant]
     Active Substance: PREDNISONE
  12. CYMBALTA [Concomitant]
     Active Substance: DULOXETINE HYDROCHLORIDE
  13. DEXILANT [Concomitant]
     Active Substance: DEXLANSOPRAZOLE
  14. LIPITOR [Concomitant]
     Active Substance: ATORVASTATIN CALCIUM
  15. XANAX [Concomitant]
     Active Substance: ALPRAZOLAM
  16. CYCLOSPORINE. [Concomitant]
     Active Substance: CYCLOSPORINE
  17. FENOFIBRATE. [Concomitant]
     Active Substance: FENOFIBRATE
  18. HYDROCODONE/APAP [Concomitant]
     Active Substance: ACETAMINOPHEN\HYDROCODONE
  19. VITAMIN B12 [Concomitant]
     Active Substance: CYANOCOBALAMIN
  20. ASPIRIN. [Concomitant]
     Active Substance: ASPIRIN
     Dosage: UNK UNK, QD
     Route: 048

REACTIONS (10)
  - Sinus headache [Unknown]
  - Muscle spasms [Unknown]
  - Malaise [Unknown]
  - Nasopharyngitis [Unknown]
  - Pulmonary congestion [Unknown]
  - Mood swings [Recovered/Resolved]
  - Gastroenteritis viral [Unknown]
  - Pyrexia [Unknown]
  - Productive cough [Unknown]
  - Headache [Unknown]

NARRATIVE: CASE EVENT DATE: 2014
